FAERS Safety Report 5746158-3 (Version None)
Quarter: 2008Q2

REPORT INFORMATION
  Report Type: 
  Country: None (occurrence: None)
  Receive Date: 20080519
  Receipt Date: 20080124
  Transmission Date: 20081010
  Serious: No
  Sender: FDA-Public Use
  Company Number: TPA2008A00104

PATIENT
  Age: 59 Year
  Sex: Male

DRUGS (2)
  1. ROZEREM [Suspect]
     Indication: INSOMNIA
     Dosage: 8 MG, 1 IN 1 D, PER ORAL
     Route: 048
     Dates: start: 20080111
  2. LEXAPRO [Suspect]
     Indication: DEPRESSION
     Dosage: 10 MG, 1 IN 1 D, PER ORAL
     Route: 047
     Dates: start: 20080111

REACTIONS (2)
  - FATIGUE [None]
  - SOMNOLENCE [None]
